FAERS Safety Report 5957936-X (Version None)
Quarter: 2008Q4

REPORT INFORMATION
  Report Type: 
  Country: None (occurrence: None)
  Receive Date: 20081119
  Receipt Date: 20081110
  Transmission Date: 20090506
  Serious: Yes (Other)
  Sender: FDA-Public Use
  Company Number: SE-TYCO HEALTHCARE/MALLINCKRODT-T200801937

PATIENT

DRUGS (1)
  1. ANAFRANIL CAP [Suspect]

REACTIONS (2)
  - BEZOAR [None]
  - OVERDOSE [None]
